FAERS Safety Report 8111360-2 (Version None)
Quarter: 2012Q1

REPORT INFORMATION
  Report Type: 
  Country: None (occurrence: None)
  Receive Date: 20120127
  Receipt Date: 20111216
  Transmission Date: 20120608
  Serious: Yes (Other)
  Sender: FDA-Public Use
  Company Number: 2012030740

PATIENT
  Age: 47 Year
  Sex: Male
  Weight: 53.5244 kg

DRUGS (15)
  1. ACETAMINOPHEN [Concomitant]
  2. ZYMAR [Concomitant]
  3. HIZENTRA [Suspect]
     Indication: IMMUNODEFICIENCY COMMON VARIABLE
     Dosage: 12 G 1X/WEEK, 4 GM (20 ML) ON FOUR SITES OVER ONE TO TWO HOURS, SUBCUTANEOUS
     Route: 058
     Dates: start: 20110213
  4. HIZENTRA [Suspect]
     Indication: IMMUNODEFICIENCY COMMON VARIABLE
     Dosage: 12 G 1X/WEEK, 4 GM (20 ML) ON FOUR SITES OVER ONE TO TWO HOURS, SUBCUTANEOUS
     Route: 058
     Dates: start: 20111211
  5. AZITHROMYCN (AZITHROMYCIN) [Concomitant]
  6. IBUPROFEN [Concomitant]
  7. MULTI-VITAMIN [Concomitant]
  8. ARTIFICIAL TEARS (ARTIFICIAL TEARS) [Concomitant]
  9. VITAMIN D [Concomitant]
  10. FISH OIL (FISH OIL) [Concomitant]
  11. PREDNISOLONE AC (PREDNISOLONE) [Concomitant]
  12. ASPIRIN [Concomitant]
  13. CETIRIZINE HCL (CETIRIZINE HYDROCHLORIDE) [Concomitant]
  14. JANTOVEN [Concomitant]
  15. NEO/POLY/DEXAMETHASONE (DEXAMETHASONE W/NEOMYCIN, POLYMYXIN B) [Concomitant]

REACTIONS (3)
  - SOFT TISSUE INFECTION [None]
  - SKIN INFECTION [None]
  - OFF LABEL USE [None]
